FAERS Safety Report 6458948-2 (Version None)
Quarter: 2009Q4

REPORT INFORMATION
  Report Type: 
  Country: None (occurrence: None)
  Receive Date: 20091125
  Receipt Date: 20091125
  Transmission Date: 20100525
  Serious: Yes (Other)
  Sender: FDA-Public Use
  Company Number: None

PATIENT
  Sex: Female
  Weight: 59.8748 kg

DRUGS (2)
  1. REGLAN [Suspect]
     Indication: ABDOMINAL PAIN UPPER
     Dosage: 10 MG
     Dates: start: 20080213, end: 20090408
  2. REGLAN [Suspect]
     Indication: GASTROOESOPHAGEAL REFLUX DISEASE
     Dosage: 10 MG
     Dates: start: 20080213, end: 20090408

REACTIONS (4)
  - FEELING ABNORMAL [None]
  - FORMICATION [None]
  - MIDDLE INSOMNIA [None]
  - SUICIDAL IDEATION [None]
